FAERS Safety Report 17968869 (Version 1)
Quarter: 2020Q3

REPORT INFORMATION
  Report Type: Spontaneous
  Country: CH (occurrence: CH)
  Receive Date: 20200701
  Receipt Date: 20200701
  Transmission Date: 20201103
  Serious: Yes (Other)
  Sender: FDA-Public Use
  Company Number: CH-SA-2020SA168478

PATIENT

DRUGS (9)
  1. ALIROCUMAB [Suspect]
     Active Substance: ALIROCUMAB
     Dosage: IN TOTAL
     Route: 058
     Dates: start: 20200521, end: 20200521
  2. MAGNESIUM DIASPORAL [Concomitant]
     Active Substance: MAGNESIUM
  3. PEMZEK [Concomitant]
  4. ZOMIG [Concomitant]
     Active Substance: ZOLMITRIPTAN
     Dosage: AS NECESSARY
  5. ALIROCUMAB [Suspect]
     Active Substance: ALIROCUMAB
     Indication: BLOOD CHOLESTEROL INCREASED
     Dosage: IN TOTAL
     Route: 058
     Dates: start: 20200508, end: 20200508
  6. SURMONTIL [Concomitant]
     Active Substance: TRIMIPRAMINE MALEATE
     Dosage: AS NECESSARY
  7. VITAMIN D3 WILD [Concomitant]
     Active Substance: CHOLECALCIFEROL
  8. ALIROCUMAB [Suspect]
     Active Substance: ALIROCUMAB
     Dosage: IN TOTAL
     Route: 058
     Dates: start: 20200604, end: 20200604
  9. TERBINAFINE. [Concomitant]
     Active Substance: TERBINAFINE

REACTIONS (7)
  - Oedema peripheral [Recovered/Resolved]
  - Neuralgia [Recovered/Resolved]
  - Circulatory collapse [Recovered/Resolved]
  - Blood pressure decreased [Recovered/Resolved]
  - Feeling cold [Recovered/Resolved]
  - Tachycardia [Recovered/Resolved]
  - Gait disturbance [Recovered/Resolved]

NARRATIVE: CASE EVENT DATE: 20200521
